FAERS Safety Report 9499080 (Version 1)
Quarter: 2013Q3

REPORT INFORMATION
  Report Type: Spontaneous
  Country: US (occurrence: US)
  Receive Date: 20130904
  Receipt Date: 20130904
  Transmission Date: 20140515
  Serious: Yes (Other)
  Sender: FDA-Public Use
  Company Number: US-ROCHE-1268070

PATIENT
  Age: 61 Year
  Sex: Male

DRUGS (3)
  1. ERIVEDGE [Suspect]
     Indication: BASAL CELL CARCINOMA
     Route: 048
     Dates: start: 20130418, end: 20130827
  2. MOBIC [Concomitant]
  3. VICODIN [Concomitant]

REACTIONS (1)
  - Metastatic malignant melanoma [Not Recovered/Not Resolved]
